FAERS Safety Report 8030188-5 (Version None)
Quarter: 2012Q1

REPORT INFORMATION
  Report Type: 
  Country: None (occurrence: None)
  Receive Date: 20120109
  Receipt Date: 20120103
  Transmission Date: 20120608
  Serious: Yes (Death, Other)
  Sender: FDA-Public Use
  Company Number: US-BAYER-200940359NA

PATIENT
  Age: 62 Year
  Sex: Female
  Weight: 94.785 kg

DRUGS (26)
  1. TRASYLOL [Suspect]
     Indication: CORONARY ARTERY BYPASS
  2. MOBIC [Concomitant]
     Dosage: 15 MG, TID
     Route: 048
  3. DIGOXIN [Concomitant]
     Dosage: 0.25MG
     Route: 042
     Dates: start: 20041207, end: 20041207
  4. VANCOMYCIN [Concomitant]
     Route: 042
  5. MANNITOL [Concomitant]
     Dosage: 60 G, UNK
     Route: 042
     Dates: start: 20041207, end: 20041207
  6. ALBUMIN (HUMAN) [Concomitant]
     Dosage: 250
     Route: 042
     Dates: start: 20041207, end: 20041207
  7. DOPAMINE HCL [Concomitant]
     Dosage: UNK
     Route: 042
     Dates: start: 20041207
  8. MILRINONE [Concomitant]
     Dosage: UNK
     Route: 042
     Dates: start: 20041207, end: 20041207
  9. ANALGESICS [Concomitant]
  10. DIGOXIN [Concomitant]
     Dosage: 0.25 MG, QD
     Route: 048
  11. GENTAMICIN [Concomitant]
     Route: 042
  12. PLASMA [Concomitant]
  13. TRASYLOL [Suspect]
     Indication: MITRAL VALVE REPLACEMENT
     Dosage: 500,000/HR INFUSION
     Route: 042
     Dates: start: 20041207, end: 20041207
  14. ANTIINFLAMMATORY/ANTIRHEUMATIC PRODUCTS [Concomitant]
  15. LISINOPRIL [Concomitant]
     Dosage: 20 MG, TID
     Route: 048
  16. POTASSIUM CHLORIDE [Concomitant]
     Dosage: 20 MEQ TWICE DAILY
     Route: 048
  17. PLATELETS [Concomitant]
  18. FENTANYL [Concomitant]
     Dosage: 1 MG, UNK
     Route: 042
     Dates: start: 20041207, end: 20041207
  19. EPINEPHRINE [Concomitant]
     Dosage: UNK
     Route: 042
     Dates: start: 20041207
  20. LASIX [Concomitant]
     Dosage: 40 MG, TID
     Route: 048
  21. NITROGLYCERIN [Concomitant]
     Dosage: UNK
     Route: 042
     Dates: start: 20041207
  22. RED BLOOD CELLS [Concomitant]
  23. HEPARIN [Concomitant]
     Dosage: 37000 U, UNK
     Route: 042
     Dates: start: 20041207, end: 20041207
  24. TRASYLOL [Suspect]
     Indication: AORTIC VALVE REPLACEMENT
     Dosage: 2000000 U, ONCE, PUMP PRIME
     Route: 042
     Dates: start: 20041207, end: 20041207
  25. ALLOPURINOL [Concomitant]
     Route: 048
  26. PROTAMINE SULFATE [Concomitant]
     Dosage: 500 MG, UNK
     Route: 042
     Dates: start: 20041207, end: 20041207

REACTIONS (13)
  - STRESS [None]
  - MULTI-ORGAN FAILURE [None]
  - RENAL INJURY [None]
  - ANHEDONIA [None]
  - RENAL FAILURE [None]
  - PAIN [None]
  - INJURY [None]
  - DEATH [None]
  - RENAL IMPAIRMENT [None]
  - FEAR [None]
  - EMOTIONAL DISTRESS [None]
  - ANXIETY [None]
  - UNEVALUABLE EVENT [None]
